FAERS Safety Report 5496467-0 (Version None)
Quarter: 2007Q4

REPORT INFORMATION
  Report Type: 
  Country: None (occurrence: None)
  Receive Date: 20071025
  Receipt Date: 20071012
  Transmission Date: 20080405
  Serious: Yes (Death, Life-Threatening)
  Sender: FDA-Public Use
  Company Number: JP-ELI_LILLY_AND_COMPANY-JP200708000582

PATIENT
  Sex: Female
  Weight: 52 kg

DRUGS (1)
  1. GEMZAR [Suspect]
     Indication: GALLBLADDER CANCER
     Dosage: 800 MG, OTHER
     Route: 042
     Dates: start: 20070711, end: 20070711

REACTIONS (4)
  - ACUTE CORONARY SYNDROME [None]
  - ATRIOVENTRICULAR BLOCK COMPLETE [None]
  - DISSEMINATED INTRAVASCULAR COAGULATION [None]
  - MALIGNANT NEOPLASM PROGRESSION [None]
